FAERS Safety Report 16591091 (Version 6)
Quarter: 2025Q3

REPORT INFORMATION
  Report Type: Report from Study
  Country: JP (occurrence: JP)
  Receive Date: 20190718
  Receipt Date: 20250918
  Transmission Date: 20251021
  Serious: Yes (Other)
  Sender: NOVARTIS
  Company Number: PHJP2019JP009300

PATIENT
  Age: 75 Year
  Sex: Male

DRUGS (8)
  1. TAFINLAR [Suspect]
     Active Substance: DABRAFENIB MESYLATE
     Indication: Malignant melanoma stage IV
     Route: 048
     Dates: start: 20171031, end: 201807
  2. TAFINLAR [Suspect]
     Active Substance: DABRAFENIB MESYLATE
     Indication: Metastases to bone
     Route: 048
     Dates: start: 201808, end: 20181023
  3. TAFINLAR [Suspect]
     Active Substance: DABRAFENIB MESYLATE
     Route: 048
     Dates: start: 201812
  4. MEKINIST [Suspect]
     Active Substance: TRAMETINIB DIMETHYL SULFOXIDE
     Indication: Malignant melanoma stage IV
     Route: 048
     Dates: start: 20171031, end: 201807
  5. MEKINIST [Suspect]
     Active Substance: TRAMETINIB DIMETHYL SULFOXIDE
     Indication: Metastases to bone
     Route: 048
     Dates: start: 201808, end: 20181023
  6. MEKINIST [Suspect]
     Active Substance: TRAMETINIB DIMETHYL SULFOXIDE
     Route: 048
     Dates: start: 201812
  7. DENOSUMAB [Concomitant]
     Active Substance: DENOSUMAB
     Indication: Malignant melanoma stage IV
     Route: 065
  8. DENOSUMAB [Concomitant]
     Active Substance: DENOSUMAB
     Indication: Metastases to bone

REACTIONS (7)
  - Arrhythmia [Not Recovered/Not Resolved]
  - Diabetes mellitus [Unknown]
  - Glucose urine present [Recovering/Resolving]
  - Cholangitis [Recovering/Resolving]
  - Pyrexia [Not Recovered/Not Resolved]
  - Protein urine [Recovered/Resolved]
  - Ejection fraction decreased [Unknown]

NARRATIVE: CASE EVENT DATE: 20180123
